FAERS Safety Report 6047495-8 (Version None)
Quarter: 2009Q1

REPORT INFORMATION
  Report Type: 
  Country: None (occurrence: None)
  Receive Date: 20090122
  Receipt Date: 20090113
  Transmission Date: 20090719
  Serious: Yes (Other)
  Sender: FDA-Public Use
  Company Number: IL-ROXANE LABORATORIES, INC.-2009-RO-00063RO

PATIENT
  Age: 64 Year
  Sex: Female

DRUGS (6)
  1. LITHIUM CARBONATE [Suspect]
     Indication: DEPRESSION
  2. DDAVP [Suspect]
     Route: 058
  3. RADIO ACTIVE IODINE [Suspect]
  4. ELTROXIN [Suspect]
     Indication: HORMONE SUPPRESSION THERAPY
  5. CALCIUM [Concomitant]
     Indication: HYPOCALCAEMIA
  6. VITAMIN D3 [Concomitant]
     Indication: HYPOCALCAEMIA

REACTIONS (8)
  - BLOOD CALCIUM INCREASED [None]
  - HYPERCALCIURIA [None]
  - HYPERPARATHYROIDISM [None]
  - HYPOCALCAEMIA [None]
  - NEPHROGENIC DIABETES INSIPIDUS [None]
  - OSTEOPOROSIS [None]
  - PARATHYROID TUMOUR BENIGN [None]
  - THYROID CANCER [None]
